FAERS Safety Report 5450867-3 (Version None)
Quarter: 2007Q3

REPORT INFORMATION
  Report Type: 
  Country: None (occurrence: None)
  Receive Date: 20070913
  Receipt Date: 20070906
  Transmission Date: 20080115
  Serious: Yes (Other)
  Sender: FDA-Public Use
  Company Number: PHFR2007GB02663

PATIENT
  Sex: Female

DRUGS (3)
  1. GLEEVEC [Suspect]
     Indication: CHRONIC MYELOID LEUKAEMIA
     Dosage: 400 MG, QD
     Dates: start: 20040101
  2. OFLOXACIN [Suspect]
     Indication: INFECTION
     Route: 065
  3. METRONIDAZOLE [Suspect]
     Indication: INFECTION
     Route: 065

REACTIONS (6)
  - ABNORMAL DREAMS [None]
  - DIZZINESS [None]
  - DRUG INTERACTION [None]
  - INFECTION [None]
  - NAUSEA [None]
  - VOMITING [None]
